FAERS Safety Report 17227095 (Version 2)
Quarter: 2020Q1

REPORT INFORMATION
  Report Type: Spontaneous
  Country: US (occurrence: US)
  Receive Date: 20200103
  Receipt Date: 20200331
  Transmission Date: 20200409
  Serious: No
  Sender: FDA-Public Use
  Company Number: US-JNJFOC-20191234314

PATIENT
  Sex: Male
  Weight: 95.34 kg

DRUGS (1)
  1. ZYRTEC [Suspect]
     Active Substance: CETIRIZINE HYDROCHLORIDE
     Indication: HYPERSENSITIVITY
     Dosage: 1 CAPLET ONCE DAILY?LAST ADMINISTRATION DATE: 19/DEC/2019
     Route: 048
     Dates: start: 20191207

REACTIONS (1)
  - Drug ineffective [Unknown]
